FAERS Safety Report 24265259 (Version 1)
Quarter: 2024Q3

REPORT INFORMATION
  Report Type: Spontaneous
  Country: ES (occurrence: ES)
  Receive Date: 20240829
  Receipt Date: 20240829
  Transmission Date: 20241016
  Serious: Yes (Other)
  Sender: VERTEX
  Company Number: ES-VERTEX PHARMACEUTICALS-2023-017972

PATIENT
  Age: 40 Year
  Sex: Male

DRUGS (4)
  1. ELEXACAFTOR\IVACAFTOR\TEZACAFTOR [Suspect]
     Active Substance: ELEXACAFTOR\IVACAFTOR\TEZACAFTOR
     Indication: Cystic fibrosis
     Dosage: 2 TABLETS (75 MG IVACAFTOR, 50 MG TEZACAFTOR AND 100 MG ELEXACAFTOR) IN THE MORNING
     Route: 048
     Dates: start: 202202, end: 2022
  2. ELEXACAFTOR\IVACAFTOR\TEZACAFTOR [Suspect]
     Active Substance: ELEXACAFTOR\IVACAFTOR\TEZACAFTOR
     Dosage: QUARTER TABLET OF ETI WEEKLY, REACHING THERAPEUTIC DOSE OF 2 TABS
     Route: 048
  3. KALYDECO [Suspect]
     Active Substance: IVACAFTOR
     Indication: Cystic fibrosis
     Dosage: 150 MILLIGRAM, QD
     Route: 048
     Dates: start: 202202, end: 2022
  4. KALYDECO [Suspect]
     Active Substance: IVACAFTOR
     Dosage: 0.15MG; 2MG/ML: ONE TABLET OF IVA 150MG DILUTED IN 75ML. DOUBLED TO 1/8 TABLETS OVER 5 DAYS, THEN QU
     Route: 048

REACTIONS (4)
  - Type IV hypersensitivity reaction [Recovered/Resolved]
  - Eosinophilia [Recovered/Resolved]
  - Rash maculo-papular [Recovered/Resolved]
  - COVID-19 [Unknown]

NARRATIVE: CASE EVENT DATE: 20220101
